FAERS Safety Report 11788632 (Version 1)
Quarter: 2015Q4

REPORT INFORMATION
  Report Type: Spontaneous
  Country: US (occurrence: None)
  Receive Date: 20151130
  Receipt Date: 20151130
  Transmission Date: 20160305
  Serious: Yes (Disabling, Other)
  Sender: FDA-Public Use
  Company Number: None

PATIENT
  Age: 49 Year
  Sex: Female
  Weight: 74.84 kg

DRUGS (2)
  1. SYNTHROID [Concomitant]
     Active Substance: LEVOTHYROXINE SODIUM
  2. CREST PRO-HEALTH HD [Suspect]
     Active Substance: STANNOUS FLUORIDE
     Dosage: 5119144708 -- APPLIED TO A SURFACE, USUALLY THE SKIN
     Route: 061

REACTIONS (2)
  - Gingival erosion [None]
  - Gingival blister [None]

NARRATIVE: CASE EVENT DATE: 20151102
